FAERS Safety Report 10841490 (Version 1)
Quarter: 2015Q1

REPORT INFORMATION
  Report Type: Spontaneous
  Country: CN (occurrence: CN)
  Receive Date: 20150220
  Receipt Date: 20150220
  Transmission Date: 20150721
  Serious: Yes (Hospitalization)
  Sender: FDA-Public Use
  Company Number: CN-009507513-1502CHN007478

PATIENT
  Age: 71 Year
  Sex: Male

DRUGS (4)
  1. PROSCAR [Suspect]
     Active Substance: FINASTERIDE
     Indication: BENIGN PROSTATIC HYPERPLASIA
     Dosage: TOTAL DAILY DOSE: 5 MG
     Route: 048
     Dates: start: 201408
  2. GLUCOPHAGE [Concomitant]
     Active Substance: METFORMIN HYDROCHLORIDE
     Indication: DIABETES MELLITUS
     Dosage: TOTAL DAILY DOSE: 6 TABLETS
     Route: 048
  3. ACARBOSE. [Concomitant]
     Active Substance: ACARBOSE
     Indication: DIABETES MELLITUS
     Dosage: TOTAL DAILY DOSE: 6 TABLETS
     Route: 048
  4. PROSCAR [Suspect]
     Active Substance: FINASTERIDE
     Dosage: TOTAL DAILY DOSE: 5 MG
     Route: 048

REACTIONS (2)
  - Urinary tract obstruction [Unknown]
  - Diabetes mellitus [Recovered/Resolved]
